FAERS Safety Report 6146818-9 (Version None)
Quarter: 2009Q2

REPORT INFORMATION
  Report Type: 
  Country: None (occurrence: None)
  Receive Date: 20090406
  Receipt Date: 20090406
  Transmission Date: 20091009
  Serious: Yes (Hospitalization)
  Sender: FDA-Public Use
  Company Number: None

PATIENT
  Sex: Male
  Weight: 91.1 kg

DRUGS (3)
  1. TREANDA [Suspect]
     Indication: LYMPHOCYTIC LYMPHOMA
     Dosage: 182 MG ONCE, DAYS 1, 4 IV
     Route: 042
     Dates: start: 20080715, end: 20080821
  2. BORTEZOMIB [Concomitant]
  3. RITUXIMAB [Concomitant]

REACTIONS (3)
  - ATRIAL FIBRILLATION [None]
  - PLEURAL EFFUSION [None]
  - PNEUMONIA [None]
